FAERS Safety Report 7527734-4 (Version None)
Quarter: 2011Q2

REPORT INFORMATION
  Report Type: 
  Country: None (occurrence: None)
  Receive Date: 20110607
  Receipt Date: 20110523
  Transmission Date: 20111010
  Serious: Yes (Other)
  Sender: FDA-Public Use
  Company Number: CA-JNJFOC-20110308022

PATIENT
  Sex: Male
  Weight: 109 kg

DRUGS (2)
  1. REMICADE [Suspect]
     Indication: PSORIATIC ARTHROPATHY
     Route: 042
     Dates: start: 20100112, end: 20110117
  2. TYLENOL-500 [Concomitant]
     Indication: PREMEDICATION
     Route: 048

REACTIONS (1)
  - NEPHROLITHIASIS [None]
